FAERS Safety Report 9848436 (Version 1)
Quarter: 2014Q1

REPORT INFORMATION
  Report Type: Spontaneous
  Country: US (occurrence: None)
  Receive Date: 20140124
  Receipt Date: 20140124
  Transmission Date: 20141002
  Serious: Yes (Hospitalization)
  Sender: FDA-Public Use
  Company Number: None

PATIENT
  Age: 68 Year
  Sex: Male
  Weight: 142.1 kg

DRUGS (2)
  1. SULFAMETHOXAZOLE/TRIMETHOPRIM [Suspect]
     Dosage: 2 TAB BID PO
     Route: 048
     Dates: start: 20130821, end: 20130831
  2. LISINOPRIL [Suspect]
     Route: 048
     Dates: start: 20080707, end: 20130901

REACTIONS (3)
  - Renal failure acute [None]
  - Cytomegalovirus colitis [None]
  - International normalised ratio increased [None]
